FAERS Safety Report 18727670 (Version 1)
Quarter: 2021Q1

REPORT INFORMATION
  Report Type: Spontaneous
  Country: US (occurrence: US)
  Receive Date: 20210112
  Receipt Date: 20210112
  Transmission Date: 20210419
  Serious: Yes (Hospitalization, Other)
  Sender: FDA-Public Use
  Company Number: US-LUPIN PHARMACEUTICALS INC.-2020-11647

PATIENT
  Age: 38 Year
  Sex: Female

DRUGS (6)
  1. NATPARA (PARATHYROID HORMONE) [Suspect]
     Active Substance: PARATHYROID HORMONE
     Dosage: 75 MICROGRAM
     Route: 065
  2. CINACALCET. [Suspect]
     Active Substance: CINACALCET
     Indication: HYPERCALCAEMIA
     Dosage: UNKNOWN
     Route: 065
  3. NATPARA (PARATHYROID HORMONE) [Suspect]
     Active Substance: PARATHYROID HORMONE
     Indication: HYPOPARATHYROIDISM
     Dosage: 50 MICROGRAM
     Route: 065
  4. CALCITRIOL. [Suspect]
     Active Substance: CALCITRIOL
     Indication: HYPOCALCAEMIA
     Dosage: 0.5 MICROGRAM, TID
     Route: 065
  5. CALCIUM ACETATE. [Suspect]
     Active Substance: CALCIUM ACETATE
     Indication: SUPPLEMENTATION THERAPY
     Dosage: 2001 MILLIGRAM, TID (CALCIUM ACETATE)
     Route: 065
  6. CALCIUM ACETATE. [Suspect]
     Active Substance: CALCIUM ACETATE
     Indication: HYPOCALCAEMIA
     Dosage: 1250 MILLIGRAM, TID (CALCIUM CARBONATE)
     Route: 065

REACTIONS (6)
  - Musculoskeletal disorder [Unknown]
  - Drug ineffective [Unknown]
  - Overdose [Unknown]
  - Calciphylaxis [Unknown]
  - Hypercalcaemia [Recovered/Resolved]
  - Toxicity to various agents [Unknown]
